FAERS Safety Report 8606341-6 (Version None)
Quarter: 2012Q3

REPORT INFORMATION
  Report Type: 
  Country: None (occurrence: None)
  Receive Date: 20120820
  Receipt Date: 20120112
  Transmission Date: 20120928
  Serious: Yes (Hospitalization)
  Sender: FDA-Public Use
  Company Number: VE-ROCHE-1103084

PATIENT
  Sex: Male

DRUGS (4)
  1. XOLAIR [Suspect]
     Indication: ASTHMA
     Dates: start: 20111017
  2. OMEPRAZOLE [Concomitant]
  3. UNASYN [Concomitant]
  4. LORATADINE [Concomitant]

REACTIONS (1)
  - CHOLELITHIASIS [None]
